FAERS Safety Report 12964331 (Version 1)
Quarter: 2016Q4

REPORT INFORMATION
  Report Type: Spontaneous
  Country: US (occurrence: US)
  Receive Date: 20161122
  Receipt Date: 20161122
  Transmission Date: 20170207
  Serious: No
  Sender: FDA-Public Use
  Company Number: US-PFIZER INC-2016531488

PATIENT
  Age: 92 Year
  Sex: Female
  Weight: 65 kg

DRUGS (1)
  1. LYRICA [Suspect]
     Active Substance: PREGABALIN
     Indication: CAPILLARY DISORDER
     Dosage: 75 MG, UNK

REACTIONS (4)
  - Peripheral coldness [Unknown]
  - Pain in extremity [Unknown]
  - Drug ineffective for unapproved indication [Unknown]
  - Burning sensation [Unknown]
